FAERS Safety Report 8014953-6 (Version None)
Quarter: 2011Q4

REPORT INFORMATION
  Report Type: 
  Country: None (occurrence: None)
  Receive Date: 20111229
  Receipt Date: 20111212
  Transmission Date: 20120403
  Serious: Yes (Hospitalization)
  Sender: FDA-Public Use
  Company Number: FR-NOVOPROD-339814

PATIENT

DRUGS (3)
  1. SIMVASTATIN [Concomitant]
     Indication: HYPERTENSION
  2. METFORMIN HCL [Concomitant]
     Indication: DIABETES MELLITUS
  3. VICTOZA [Suspect]
     Indication: DIABETES MELLITUS
     Dosage: 0.6 MG, QD
     Route: 058
     Dates: start: 20111019, end: 20111020

REACTIONS (1)
  - PANCREATITIS [None]
